FAERS Safety Report 10574746 (Version 3)
Quarter: 2015Q3

REPORT INFORMATION
  Report Type: Report from Study
  Country: US (occurrence: US)
  Receive Date: 20141110
  Receipt Date: 20150818
  Transmission Date: 20151125
  Serious: No
  Sender: FDA-Public Use
  Company Number: US-GILEAD-2014-0121428

PATIENT
  Age: 36 Year
  Sex: Female

DRUGS (2)
  1. AMBRISENTAN [Suspect]
     Active Substance: AMBRISENTAN
     Indication: PULMONARY HYPERTENSION
     Dosage: 10 MG, UNK
     Dates: start: 20130122
  2. AMBRISENTAN [Suspect]
     Active Substance: AMBRISENTAN
     Indication: HEART DISEASE CONGENITAL

REACTIONS (2)
  - Chest pain [Unknown]
  - Bronchitis [Unknown]
